FAERS Safety Report 18461374 (Version 5)
Quarter: 2021Q2

REPORT INFORMATION
  Report Type: Spontaneous
  Country: JP (occurrence: JP)
  Receive Date: 20201104
  Receipt Date: 20210623
  Transmission Date: 20210717
  Serious: Yes (Hospitalization)
  Sender: FDA-Public Use
  Company Number: NVSJ2020JP011247

PATIENT
  Age: 70 Year
  Sex: Male
  Weight: 45.4 kg

DRUGS (2)
  1. COSENTYX [Suspect]
     Active Substance: SECUKINUMAB
     Dosage: 300 MG, Q4W
     Route: 058
     Dates: start: 20171010, end: 20180329
  2. COSENTYX [Suspect]
     Active Substance: SECUKINUMAB
     Indication: PSORIASIS
     Dosage: 300 MG, QW
     Route: 058
     Dates: start: 20170815, end: 20170912

REACTIONS (6)
  - Metastases to lymph nodes [Not Recovered/Not Resolved]
  - Diffuse large B-cell lymphoma stage II [Not Recovered/Not Resolved]
  - Gingival swelling [Unknown]
  - Nodule [Unknown]
  - Psoriasis [Not Recovered/Not Resolved]
  - Swelling face [Unknown]

NARRATIVE: CASE EVENT DATE: 20180705
